FAERS Safety Report 9068911 (Version 1)
Quarter: 2013Q1

REPORT INFORMATION
  Report Type: Spontaneous
  Country: US (occurrence: None)
  Receive Date: 20130213
  Receipt Date: 20130213
  Transmission Date: 20140127
  Serious: Yes (Hospitalization, Other)
  Sender: FDA-Public Use
  Company Number: None

PATIENT
  Age: 58 Year
  Sex: Female
  Weight: 130.18 kg

DRUGS (1)
  1. ALLOPURINOL [Suspect]
     Indication: GOUT
     Route: 048
     Dates: start: 20121114, end: 20121218

REACTIONS (8)
  - Urticaria [None]
  - Pyrexia [None]
  - Swelling face [None]
  - Ear swelling [None]
  - Oedema mouth [None]
  - Upper respiratory tract infection [None]
  - Rash [None]
  - Skin exfoliation [None]
